FAERS Safety Report 9665900 (Version 1)
Quarter: 2013Q4

REPORT INFORMATION
  Report Type: Spontaneous
  Country: US (occurrence: None)
  Receive Date: 20131101
  Receipt Date: 20131101
  Transmission Date: 20140711
  Serious: Yes (Life-Threatening)
  Sender: FDA-Public Use
  Company Number: None

PATIENT
  Age: 4 Day
  Sex: Male
  Weight: 71.22 kg

DRUGS (1)
  1. PACERONE [Suspect]
     Indication: ATRIAL FLUTTER
     Route: 048
     Dates: start: 20130121, end: 20130411

REACTIONS (1)
  - No adverse event [None]
